FAERS Safety Report 7419183-4 (Version None)
Quarter: 2011Q2

REPORT INFORMATION
  Report Type: 
  Country: None (occurrence: None)
  Receive Date: 20110415
  Receipt Date: 20110321
  Transmission Date: 20111010
  Serious: No
  Sender: FDA-Public Use
  Company Number: US-B.I. PHARMACEUTICALS,INC./RIDGEFIELD-2011-BP-02495BP

PATIENT
  Age: 64 Year
  Sex: Male
  Weight: 84.14 kg

DRUGS (5)
  1. TOPROL-XL [Concomitant]
     Dates: start: 20060101
  2. CRESTOR [Concomitant]
     Dosage: 5 MG
     Dates: start: 20100101
  3. DIGOXIN [Concomitant]
     Dosage: 0.25 MG
     Dates: start: 20060101
  4. ACCUPRIL [Concomitant]
     Dates: start: 20060101
  5. PRADAXA [Suspect]
     Indication: ATRIAL FIBRILLATION
     Dosage: 300 MG
     Route: 048
     Dates: start: 20110107, end: 20110121

REACTIONS (1)
  - ANAL ULCER [None]
